FAERS Safety Report 13267337 (Version 1)
Quarter: 2017Q1

REPORT INFORMATION
  Report Type: Spontaneous
  Country: US (occurrence: US)
  Receive Date: 20170224
  Receipt Date: 20170224
  Transmission Date: 20170428
  Serious: No
  Sender: FDA-Public Use
  Company Number: US-ASTRAZENECA-2017SE19628

PATIENT
  Age: 59 Year
  Sex: Male
  Weight: 74.4 kg

DRUGS (5)
  1. CARCUMIN OTC [Concomitant]
     Indication: NEOPLASM MALIGNANT
     Route: 048
     Dates: start: 2002
  2. TAGAMET [Concomitant]
     Active Substance: CIMETIDINE
     Indication: PROSTATE CANCER METASTATIC
     Route: 048
     Dates: start: 2002
  3. METFORMIN [Concomitant]
     Active Substance: METFORMIN HYDROCHLORIDE
     Indication: GLUCOSE TOLERANCE IMPAIRED
     Route: 048
     Dates: start: 2005
  4. ZOLADEX [Suspect]
     Active Substance: GOSERELIN ACETATE
     Indication: PROSTATE CANCER METASTATIC
     Route: 058
     Dates: start: 200107, end: 201607
  5. METFORMIN [Concomitant]
     Active Substance: METFORMIN HYDROCHLORIDE
     Indication: NEOPLASM MALIGNANT
     Route: 048
     Dates: start: 2005

REACTIONS (7)
  - Breast enlargement [Not Recovered/Not Resolved]
  - Fluid imbalance [Not Recovered/Not Resolved]
  - Blood pressure increased [Not Recovered/Not Resolved]
  - Osteoporosis [Unknown]
  - Asthenia [Not Recovered/Not Resolved]
  - Weight decreased [Not Recovered/Not Resolved]
  - Meniere^s disease [Unknown]

NARRATIVE: CASE EVENT DATE: 2002
